FAERS Safety Report 8571556-2 (Version None)
Quarter: 2012Q3

REPORT INFORMATION
  Report Type: 
  Country: None (occurrence: None)
  Receive Date: 20120806
  Receipt Date: 20120731
  Transmission Date: 20120928
  Serious: Yes (Other)
  Sender: FDA-Public Use
  Company Number: PHHY2012BR066840

PATIENT
  Age: 59 Year
  Sex: Female

DRUGS (4)
  1. AMLODIPINE [Concomitant]
     Indication: BLOOD PRESSURE ABNORMAL
     Dosage: 1 DF (5 MG), DAILY
  2. DIOVAN HCT [Suspect]
     Dosage: 1 DF (320/12.5 MG), DAILY
  3. AMLODIPINE [Concomitant]
     Dosage: 2 DF (5 MG), DAILY
  4. DIOVAN HCT [Suspect]
     Indication: HYPERTENSION
     Dosage: 1 DF (160/12.5 MG), DAILY

REACTIONS (7)
  - OEDEMA PERIPHERAL [None]
  - BLOOD PRESSURE INCREASED [None]
  - DRY MOUTH [None]
  - MIGRAINE [None]
  - BREAST CANCER [None]
  - HEADACHE [None]
  - DIZZINESS [None]
